FAERS Safety Report 21695411 (Version 1)
Quarter: 2022Q4

REPORT INFORMATION
  Report Type: Spontaneous
  Country: US (occurrence: US)
  Receive Date: 20221207
  Receipt Date: 20221207
  Transmission Date: 20230113
  Serious: No
  Sender: FDA-Public Use
  Company Number: US-ALLERGAN-2229696US

PATIENT
  Sex: Female

DRUGS (1)
  1. LO LOESTRIN FE [Suspect]
     Active Substance: ETHINYL ESTRADIOL\NORETHINDRONE ACETATE
     Indication: Contraception

REACTIONS (6)
  - Irritability [Unknown]
  - Restlessness [Unknown]
  - Weight loss poor [Unknown]
  - Alopecia [Unknown]
  - Mood altered [Unknown]
  - Weight increased [Unknown]
